FAERS Safety Report 8070082-7 (Version None)
Quarter: 2012Q1

REPORT INFORMATION
  Report Type: 
  Country: None (occurrence: None)
  Receive Date: 20120125
  Receipt Date: 20120119
  Transmission Date: 20120608
  Serious: Yes (Other)
  Sender: FDA-Public Use
  Company Number: US-AMGEN-USASP2012004204

PATIENT
  Age: 29 Year
  Sex: Female

DRUGS (1)
  1. ENBREL [Suspect]
     Indication: RHEUMATOID ARTHRITIS
     Dosage: 50 MG, QWK
     Route: 058
     Dates: start: 20101101, end: 20101201

REACTIONS (4)
  - CAESAREAN SECTION [None]
  - UTERINE LEIOMYOMA [None]
  - RESPIRATORY ARREST [None]
  - ANAESTHETIC COMPLICATION [None]
